FAERS Safety Report 5655921-9 (Version None)
Quarter: 2008Q1

REPORT INFORMATION
  Report Type: 
  Country: None (occurrence: None)
  Receive Date: 20080307
  Receipt Date: 20080212
  Transmission Date: 20080703
  Serious: No
  Sender: FDA-Public Use
  Company Number: US-BOEHRINGER INGELHEIM GMBH, GERMANY-2008-BP-02212BP

PATIENT
  Age: 70 Year
  Sex: Female
  Weight: 52 kg

DRUGS (4)
  1. ATROVENT [Suspect]
     Indication: CHRONIC OBSTRUCTIVE PULMONARY DISEASE
  2. XOPENEX HFA [Suspect]
     Indication: EMPHYSEMA
     Route: 055
     Dates: start: 20071001, end: 20071001
  3. ALBUTEROL [Suspect]
  4. THYROID TAB [Concomitant]
     Indication: HYPOTHYROIDISM

REACTIONS (4)
  - HYPERTENSION [None]
  - NAUSEA [None]
  - TACHYCARDIA [None]
  - VOMITING [None]
